FAERS Safety Report 23295703 (Version 1)
Quarter: 2023Q4

REPORT INFORMATION
  Report Type: Spontaneous
  Country: SE (occurrence: SE)
  Receive Date: 20231214
  Receipt Date: 20231214
  Transmission Date: 20240110
  Serious: Yes (Hospitalization)
  Sender: FDA-Public Use
  Company Number: None

PATIENT
  Age: 72 Year

DRUGS (2)
  1. LEVOFLOXACIN [Suspect]
     Active Substance: LEVOFLOXACIN
     Indication: Intervertebral discitis
     Route: 065
     Dates: start: 202308
  2. RIFAMPIN [Suspect]
     Active Substance: RIFAMPIN
     Indication: Intervertebral discitis
     Route: 065
     Dates: start: 202308

REACTIONS (1)
  - Nausea [Unknown]

NARRATIVE: CASE EVENT DATE: 20230915
